FAERS Safety Report 14423439 (Version 2)
Quarter: 2018Q1

REPORT INFORMATION
  Report Type: Spontaneous
  Country: FR (occurrence: FR)
  Receive Date: 20180123
  Receipt Date: 20180129
  Transmission Date: 20180509
  Serious: Yes (Other)
  Sender: FDA-Public Use
  Company Number: FR-TEVA-2018-FR-847961

PATIENT
  Age: 75 Year
  Sex: Male
  Weight: 84 kg

DRUGS (13)
  1. CISPLATINE TEVA [Suspect]
     Active Substance: CISPLATIN
     Indication: BLADDER CANCER
     Route: 065
     Dates: start: 201711
  2. CISPLATINE TEVA [Suspect]
     Active Substance: CISPLATIN
     Dosage: ONE COURSE ON 20, 21 AND 22-DEC-2017
     Route: 065
     Dates: start: 201712
  3. AMLODIPINE [Concomitant]
     Active Substance: AMLODIPINE BESYLATE
     Dosage: 1 DOSAGE FORMS DAILY; LONG COURSE TREATMENT FOR MORE THAN 20 YEARS
  4. INNOHEP [Concomitant]
     Active Substance: TINZAPARIN SODIUM
     Dates: start: 201712
  5. METFORMIN [Concomitant]
     Active Substance: METFORMIN HYDROCHLORIDE
     Indication: DIABETES MELLITUS
  6. TOUJEO [Concomitant]
     Active Substance: INSULIN GLARGINE
     Indication: DIABETES MELLITUS
     Dosage: 12 IU (INTERNATIONAL UNIT) DAILY;
     Dates: start: 20171230
  7. PREVISCAN (FLUINDIONE) [Concomitant]
     Active Substance: FLUINDIONE
     Dosage: REPLACED WITH INNOHEP IN MID DECEMBER 2017
     Dates: end: 201712
  8. GEMCITABINE [Suspect]
     Active Substance: GEMCITABINE\GEMCITABINE HYDROCHLORIDE
     Dosage: ONE COURSE ON 20, 21 AND 22-DEC-2017
     Route: 065
     Dates: start: 201712
  9. KOMBOGLYZE [Concomitant]
     Active Substance: METFORMIN HYDROCHLORIDE\SAXAGLIPTIN
     Indication: DIABETES MELLITUS
     Dosage: 2 DOSAGE FORMS DAILY; LONG COURSE TREATMENT FOR MORE THAN 20 YEARS
  10. GEMCITABINE [Suspect]
     Active Substance: GEMCITABINE\GEMCITABINE HYDROCHLORIDE
     Indication: BLADDER CANCER
     Route: 065
     Dates: start: 201711, end: 201712
  11. ATENOLOL 50 MG [Concomitant]
     Active Substance: ATENOLOL
     Dosage: 1 DOSAGE FORMS DAILY; LONG COURSE TREATMENT FOR MORE THAN 20 YEARS
  12. NOVONORM 2 MG [Concomitant]
     Dosage: 3 DOSAGE FORMS DAILY; LONG COURSE TREATMENT FOR MORE THAN 20 YEARS
  13. SIMVASTATIN. [Concomitant]
     Active Substance: SIMVASTATIN
     Dosage: .5 DOSAGE FORMS DAILY; LONG COURSE TREATMENT FOR MORE THAN 20 YEARS

REACTIONS (7)
  - Phlebitis [Not Recovered/Not Resolved]
  - Pain in extremity [Not Recovered/Not Resolved]
  - Pain [Not Recovered/Not Resolved]
  - Gait disturbance [Not Recovered/Not Resolved]
  - General physical health deterioration [Not Recovered/Not Resolved]
  - Peripheral swelling [Not Recovered/Not Resolved]
  - Pain in extremity [Not Recovered/Not Resolved]

NARRATIVE: CASE EVENT DATE: 201712
